FAERS Safety Report 8201192-9 (Version None)
Quarter: 2012Q1

REPORT INFORMATION
  Report Type: 
  Country: None (occurrence: None)
  Receive Date: 20120312
  Receipt Date: 20120301
  Transmission Date: 20120608
  Serious: Yes (Other)
  Sender: FDA-Public Use
  Company Number: PHHY2012ES018234

PATIENT

DRUGS (2)
  1. OLMESARTAN MEDOXOMIL [Interacting]
  2. RASILEZ [Suspect]
     Indication: HYPERTENSION
     Dosage: 150 MG, TID
     Route: 048

REACTIONS (2)
  - RENAL FAILURE [None]
  - DRUG INTERACTION [None]
